FAERS Safety Report 11883676 (Version 3)
Quarter: 2016Q1

REPORT INFORMATION
  Report Type: Spontaneous
  Country: US (occurrence: US)
  Receive Date: 20160101
  Receipt Date: 20160121
  Transmission Date: 20160526
  Serious: No
  Sender: FDA-Public Use
  Company Number: US-AMGEN-USASP2015138494

PATIENT
  Age: 61 Year
  Sex: Male

DRUGS (1)
  1. ENBREL [Suspect]
     Active Substance: ETANERCEPT
     Indication: ANKYLOSING SPONDYLITIS
     Dosage: UNK
     Route: 065
     Dates: start: 20151110

REACTIONS (4)
  - Injection site induration [Unknown]
  - Injection site pruritus [Unknown]
  - Underdose [Unknown]
  - Injection site reaction [Unknown]

NARRATIVE: CASE EVENT DATE: 20151223
